FAERS Safety Report 4456593-1 (Version None)
Quarter: 2004Q3

REPORT INFORMATION
  Report Type: 
  Country: None (occurrence: None)
  Receive Date: 20040921
  Receipt Date: 20040908
  Transmission Date: 20050211
  Serious: Yes (Death, Hospitalization)
  Sender: FDA-Public Use
  Company Number: 9200001

PATIENT
  Age: 63 Year
  Sex: Female

DRUGS (2)
  1. AMLODIPINE [Suspect]
     Indication: SUICIDE ATTEMPT
     Dosage: 70 MG, ORAL
     Route: 048
     Dates: start: 19911213, end: 19911213
  2. OXAZEPAM [Suspect]
     Indication: SUICIDE ATTEMPT
     Dosage: ORAL
     Route: 048
     Dates: start: 19911213, end: 19911213

REACTIONS (12)
  - BRADYPHRENIA [None]
  - CARDIAC ARREST [None]
  - COMPLETED SUICIDE [None]
  - DRUG TOXICITY [None]
  - ECHOCARDIOGRAM ABNORMAL [None]
  - HYPOXIA [None]
  - METABOLIC ACIDOSIS [None]
  - MULTIPLE DRUG OVERDOSE [None]
  - MYDRIASIS [None]
  - PROSTRATION [None]
  - PUPILLARY REFLEX IMPAIRED [None]
  - SHOCK [None]
